FAERS Safety Report 7686607-7 (Version None)
Quarter: 2011Q3

REPORT INFORMATION
  Report Type: 
  Country: None (occurrence: None)
  Receive Date: 20110816
  Receipt Date: 20110808
  Transmission Date: 20111222
  Serious: Yes (Death, Hospitalization)
  Sender: FDA-Public Use
  Company Number: JP-ACTELION-A-CH2011-50593

PATIENT
  Sex: Male
  Weight: 45 kg

DRUGS (12)
  1. LOXOPROFEN SODIUM [Concomitant]
  2. VALSARTAN [Suspect]
     Indication: HYPERTENSION
     Dosage: UNK
     Dates: start: 20110613, end: 20110614
  3. TAMSULOSIN HYDROCHLORIDE [Concomitant]
  4. CARBOCISTEINE [Concomitant]
  5. BUCILLAMINE [Concomitant]
  6. FUROSEMIDE [Suspect]
     Indication: COR PULMONALE
     Dosage: UNK
     Dates: start: 20110613, end: 20110614
  7. OXYGEN [Concomitant]
  8. TRACLEER [Suspect]
     Indication: PULMONARY HYPERTENSION
     Dosage: 62.5 MG, BID
     Route: 048
     Dates: start: 20110613, end: 20110614
  9. ZOPICLONE [Concomitant]
  10. LANSOPRAZOLE [Concomitant]
  11. CLOPIDOGREL [Concomitant]
  12. SOLIFENACIN SUCCINATE [Concomitant]

REACTIONS (11)
  - MARASMUS [None]
  - URINE OUTPUT DECREASED [None]
  - HYPOXIA [None]
  - GENERAL PHYSICAL CONDITION ABNORMAL [None]
  - HYPOTENSION [None]
  - CIRCULATORY COLLAPSE [None]
  - SOMNOLENCE [None]
  - RESPIRATORY DISORDER [None]
  - CONCOMITANT DISEASE AGGRAVATED [None]
  - DEPRESSED LEVEL OF CONSCIOUSNESS [None]
  - COR PULMONALE [None]
